FAERS Safety Report 25444361 (Version 2)
Quarter: 2025Q3

REPORT INFORMATION
  Report Type: Spontaneous
  Country: JP (occurrence: None)
  Receive Date: 20250617
  Receipt Date: 20250710
  Transmission Date: 20251021
  Serious: Yes (Hospitalization)
  Sender: ORION
  Company Number: JP-Orion Corporation ORION PHARMA-ENTC2025-0077

PATIENT
  Age: 67 Year
  Sex: Male

DRUGS (2)
  1. STALEVO [Interacting]
     Active Substance: CARBIDOPA\ENTACAPONE\LEVODOPA
     Indication: Parkinson^s disease
     Dosage: LEVODOPA 100-CARBIDOPA-ENTACAPONE, 3 TABLETS DIVIDED INTO 3 DOSES (LEVODOPA 300 MG)
  2. MAGNESIUM OXIDE [Interacting]
     Active Substance: MAGNESIUM OXIDE
     Indication: Constipation

REACTIONS (7)
  - Drug interaction [Unknown]
  - Pneumonia aspiration [Unknown]
  - Urinary tract infection [Unknown]
  - Wrong technique in product usage process [Unknown]
  - Product use issue [Unknown]
  - Product complaint [Unknown]
  - Product colour issue [Unknown]
